FAERS Safety Report 8572065-7 (Version None)
Quarter: 2012Q2

REPORT INFORMATION
  Report Type: 
  Country: None (occurrence: None)
  Receive Date: 20120423
  Receipt Date: 20100816
  Transmission Date: 20120825
  Serious: Yes (Other)
  Sender: FDA-Public Use
  Company Number: PHHY2010US53978

PATIENT
  Age: 37 Year
  Sex: Female
  Weight: 87.1 kg

DRUGS (4)
  1. EXJADE [Suspect]
     Indication: HAEMOSIDEROSIS
     Dosage: 1500 MG, ORAL
     Route: 048
     Dates: start: 20090318, end: 20100429
  2. EXJADE [Suspect]
     Indication: SICKLE CELL ANAEMIA
     Dosage: 1500 MG, ORAL
     Route: 048
     Dates: start: 20090318, end: 20100429
  3. EXJADE [Suspect]
     Indication: HAEMOSIDEROSIS
     Dosage: 1500 MG, ORAL
     Route: 048
     Dates: start: 20060112, end: 20070802
  4. EXJADE [Suspect]
     Indication: SICKLE CELL ANAEMIA
     Dosage: 1500 MG, ORAL
     Route: 048
     Dates: start: 20060112, end: 20070802

REACTIONS (6)
  - PROTEINURIA [None]
  - RENAL FAILURE ACUTE [None]
  - BLOOD CREATININE INCREASED [None]
  - BLOOD UREA INCREASED [None]
  - RENAL DISORDER [None]
  - RENAL FAILURE [None]
